FAERS Safety Report 21491907 (Version 1)
Quarter: 2022Q4

REPORT INFORMATION
  Report Type: Spontaneous
  Country: US (occurrence: US)
  Receive Date: 20221021
  Receipt Date: 20221021
  Transmission Date: 20230113
  Serious: No
  Sender: FDA-Public Use
  Company Number: US-GLAXOSMITHKLINE-USCH2022038335

PATIENT

DRUGS (1)
  1. DIETARY SUPPLEMENT\PROBIOTICS [Suspect]
     Active Substance: DIETARY SUPPLEMENT\PROBIOTICS
     Indication: Anxiety
     Dosage: UNK

REACTIONS (4)
  - Psychomotor hyperactivity [Unknown]
  - Palpitations [Unknown]
  - Tremor [Unknown]
  - Product use in unapproved indication [Unknown]
